FAERS Safety Report 7634633-6 (Version None)
Quarter: 2011Q3

REPORT INFORMATION
  Report Type: 
  Country: None (occurrence: None)
  Receive Date: 20110725
  Receipt Date: 20110712
  Transmission Date: 20111222
  Serious: Yes (Hospitalization)
  Sender: FDA-Public Use
  Company Number: DE-GENENTECH-321804

PATIENT
  Age: 26 Year
  Sex: Female
  Weight: 53 kg

DRUGS (2)
  1. RITUXIMAB [Suspect]
     Indication: RHEUMATOID ARTHRITIS
     Dosage: 1000 MG, UNK
     Route: 042
     Dates: start: 20110705
  2. GLUCOCORTICOID NOS [Suspect]
     Indication: PREMEDICATION
     Dosage: UNK
     Route: 042
     Dates: start: 20110705

REACTIONS (2)
  - HYPERSENSITIVITY [None]
  - CHEST DISCOMFORT [None]
